FAERS Safety Report 7027914-0 (Version None)
Quarter: 2010Q4

REPORT INFORMATION
  Report Type: 
  Country: None (occurrence: None)
  Receive Date: 20101005
  Receipt Date: 20100922
  Transmission Date: 20110411
  Serious: Yes (Hospitalization)
  Sender: FDA-Public Use
  Company Number: US-CELGENEUS-163-21880-10092052

PATIENT
  Age: 77 Year
  Sex: Female
  Weight: 49 kg

DRUGS (13)
  1. REVLIMID [Suspect]
     Route: 048
     Dates: start: 20100203
  2. REVLIMID [Suspect]
     Route: 048
     Dates: start: 20100818, end: 20100829
  3. PREDNISONE [Suspect]
     Route: 048
     Dates: start: 20100203
  4. PREDNISONE [Suspect]
     Route: 048
     Dates: start: 20100818, end: 20100821
  5. MELPHALAN HYDROCHLORIDE [Suspect]
     Route: 048
     Dates: start: 20100203
  6. MELPHALAN HYDROCHLORIDE [Suspect]
     Route: 048
     Dates: start: 20100818, end: 20100821
  7. ASPIRIN [Concomitant]
     Indication: PRODUCT USED FOR UNKNOWN INDICATION
     Route: 048
  8. AMLODIPINE [Concomitant]
     Indication: PRODUCT USED FOR UNKNOWN INDICATION
     Route: 065
  9. DIGOXIN [Concomitant]
     Indication: PRODUCT USED FOR UNKNOWN INDICATION
     Route: 065
  10. PEPCID [Concomitant]
     Indication: PRODUCT USED FOR UNKNOWN INDICATION
     Route: 065
  11. VICODIN [Concomitant]
     Indication: PRODUCT USED FOR UNKNOWN INDICATION
     Route: 065
  12. SIMVASTATIN [Concomitant]
     Indication: PRODUCT USED FOR UNKNOWN INDICATION
     Route: 065
  13. GABAPENTIN [Concomitant]
     Indication: PRODUCT USED FOR UNKNOWN INDICATION
     Route: 065

REACTIONS (1)
  - SPINAL CORD COMPRESSION [None]
